FAERS Safety Report 12385144 (Version 1)
Quarter: 2016Q2

REPORT INFORMATION
  Report Type: Spontaneous
  Country: US (occurrence: None)
  Receive Date: 20160518
  Receipt Date: 20160518
  Transmission Date: 20160815
  Serious: Yes (Hospitalization)
  Sender: FDA-Public Use
  Company Number: None

PATIENT
  Age: 41 Year
  Sex: Female
  Weight: 95.2 kg

DRUGS (3)
  1. QVAR INHALER [Concomitant]
  2. WELLBUTRIN SR [Suspect]
     Active Substance: BUPROPION HYDROCHLORIDE
     Indication: SMOKING CESSATION THERAPY
     Route: 048
     Dates: start: 20160501, end: 20160511
  3. TUMERIC [Concomitant]
     Active Substance: TURMERIC

REACTIONS (5)
  - Throat irritation [None]
  - Ear pruritus [None]
  - Dyspnoea [None]
  - Dysphonia [None]
  - Dysphagia [None]

NARRATIVE: CASE EVENT DATE: 20160511
